FAERS Safety Report 9676943 (Version 1)
Quarter: 2013Q4

REPORT INFORMATION
  Report Type: Spontaneous
  Country: US (occurrence: US)
  Receive Date: 20131108
  Receipt Date: 20131108
  Transmission Date: 20140711
  Serious: No
  Sender: FDA-Public Use
  Company Number: US-SANOFI-AVENTIS-2013SA069277

PATIENT
  Age: 11 Year
  Sex: Male

DRUGS (2)
  1. ALLEGRA [Suspect]
     Indication: NASAL CONGESTION
     Route: 048
     Dates: start: 201303, end: 20130630
  2. ALLEGRA [Suspect]
     Indication: HYPERSENSITIVITY
     Route: 048
     Dates: start: 201303, end: 20130630

REACTIONS (1)
  - Drug ineffective [Unknown]
